FAERS Safety Report 24133375 (Version 6)
Quarter: 2025Q1

REPORT INFORMATION
  Report Type: Spontaneous
  Country: JP (occurrence: JP)
  Receive Date: 20240724
  Receipt Date: 20250125
  Transmission Date: 20250408
  Serious: Yes (Hospitalization, Other)
  Sender: ALEXION PHARMACEUTICALS
  Company Number: JP-AstraZeneca-CH-00648379A

PATIENT
  Age: 56 Year
  Weight: 60 kg

DRUGS (2)
  1. ULTOMIRIS [Suspect]
     Active Substance: RAVULIZUMAB-CWVZ
     Indication: Atypical haemolytic uraemic syndrome
     Dosage: 2700 MILLIGRAM, Q2W
  2. ULTOMIRIS [Suspect]
     Active Substance: RAVULIZUMAB-CWVZ
     Dosage: 3300 MILLIGRAM, Q8W

REACTIONS (4)
  - Meningococcal infection [Recovered/Resolved]
  - Meningitis bacterial [Recovering/Resolving]
  - Nasopharyngitis [Recovered/Resolved]
  - Meningism [Recovered/Resolved]
